FAERS Safety Report 21317245 (Version 3)
Quarter: 2023Q1

REPORT INFORMATION
  Report Type: Spontaneous
  Country: US (occurrence: US)
  Receive Date: 20220911
  Receipt Date: 20230309
  Transmission Date: 20230418
  Serious: No
  Sender: FDA-Public Use
  Company Number: US-SA-SAC20220823000672

PATIENT
  Age: 42 Year
  Sex: Female
  Weight: 84.05 kg

DRUGS (1)
  1. DUPIXENT [Suspect]
     Active Substance: DUPILUMAB
     Indication: Dermatitis atopic
     Dosage: 300 MG, QOW
     Route: 058
     Dates: start: 20210417

REACTIONS (7)
  - Dry skin [Unknown]
  - Skin fissures [Unknown]
  - Skin swelling [Unknown]
  - Condition aggravated [Unknown]
  - Rash [Unknown]
  - Skin exfoliation [Unknown]
  - Pruritus [Unknown]

NARRATIVE: CASE EVENT DATE: 20220801
